FAERS Safety Report 6657400-9 (Version None)
Quarter: 2010Q1

REPORT INFORMATION
  Report Type: 
  Country: None (occurrence: None)
  Receive Date: 20100330
  Receipt Date: 20091218
  Transmission Date: 20100710
  Serious: Yes (Disabling)
  Sender: FDA-Public Use
  Company Number: US-JNJFOC-20090605130

PATIENT
  Sex: Male
  Weight: 88.45 kg

DRUGS (2)
  1. LEVAQUIN [Suspect]
     Indication: PROSTATITIS
     Route: 048
  2. LEVAQUIN [Suspect]
     Route: 048

REACTIONS (4)
  - ARTHRALGIA [None]
  - FEELING HOT [None]
  - TENDON DISORDER [None]
  - TENDON PAIN [None]
